FAERS Safety Report 7863793-7 (Version None)
Quarter: 2011Q4

REPORT INFORMATION
  Report Type: 
  Country: None (occurrence: None)
  Receive Date: 20111028
  Receipt Date: 20111020
  Transmission Date: 20120403
  Serious: Yes (Hospitalization)
  Sender: FDA-Public Use
  Company Number: 207240

PATIENT
  Sex: Female

DRUGS (3)
  1. AVONEX [Suspect]
     Route: 030
     Dates: start: 19960819
  2. AVONEX [Suspect]
     Route: 030
     Dates: start: 20030801
  3. AVONEX [Suspect]
     Indication: MULTIPLE SCLEROSIS
     Route: 030
     Dates: start: 20080801

REACTIONS (7)
  - MUSCULOSKELETAL STIFFNESS [None]
  - OSTEOARTHRITIS [None]
  - ARTHRALGIA [None]
  - GAIT DISTURBANCE [None]
  - BURNING SENSATION [None]
  - NECK PAIN [None]
  - ARTHROPATHY [None]
